FAERS Safety Report 11345853 (Version 1)
Quarter: 2015Q3

REPORT INFORMATION
  Report Type: Spontaneous
  Country: FR (occurrence: FR)
  Receive Date: 20150806
  Receipt Date: 20150806
  Transmission Date: 20151125
  Serious: Yes (Hospitalization)
  Sender: FDA-Public Use
  Company Number: FR-009507513-1508FRA000624

PATIENT
  Age: 62 Year
  Sex: Male

DRUGS (3)
  1. PRIVIGEN [Suspect]
     Active Substance: HUMAN IMMUNOGLOBULIN G
     Indication: POLYNEUROPATHY
     Dosage: 30 G, QD
     Route: 042
     Dates: start: 20150601, end: 20150605
  2. INVANZ [Suspect]
     Active Substance: ERTAPENEM SODIUM
     Indication: INFECTION
     Dosage: 1 DF, QD
     Route: 042
     Dates: start: 20150606, end: 20150619
  3. PRIVIGEN [Suspect]
     Active Substance: HUMAN IMMUNOGLOBULIN G
     Dosage: 30 G, QD
     Route: 042
     Dates: start: 20150601, end: 20150605

REACTIONS (2)
  - Condition aggravated [Recovering/Resolving]
  - Thrombophlebitis septic [Recovering/Resolving]

NARRATIVE: CASE EVENT DATE: 20150613
